FAERS Safety Report 10221029 (Version 1)
Quarter: 2014Q2

REPORT INFORMATION
  Report Type: Spontaneous
  Country: US (occurrence: None)
  Receive Date: 20140605
  Receipt Date: 20140605
  Transmission Date: 20141212
  Serious: Yes (Other)
  Sender: FDA-Public Use
  Company Number: None

PATIENT
  Age: 62 Year
  Sex: Female
  Weight: 88 kg

DRUGS (2)
  1. MARCAINE SPINAL [Suspect]
     Indication: SPINAL ANAESTHESIA
     Dosage: ONE TIME, SPINAL
  2. MARCAINE SPINAL [Suspect]
     Indication: NEPHRECTOMY
     Dosage: ONE TIME, SPINAL

REACTIONS (3)
  - Anaesthetic complication [None]
  - Drug ineffective [None]
  - Product quality issue [None]
